FAERS Safety Report 20893075 (Version 4)
Quarter: 2022Q3

REPORT INFORMATION
  Report Type: Spontaneous
  Country: US (occurrence: US)
  Receive Date: 20220531
  Receipt Date: 20220706
  Transmission Date: 20221027
  Serious: No
  Sender: FDA-Public Use
  Company Number: US-AMGEN-USASP2022091498

PATIENT
  Age: 42 Year
  Sex: Female
  Weight: 118 kg

DRUGS (1)
  1. NEULASTA [Suspect]
     Active Substance: PEGFILGRASTIM
     Indication: Neutropenia
     Dosage: 6 MILLIGRAM, AFTER CHEMO (0.6 ML)
     Route: 058

REACTIONS (1)
  - Unintentional medical device removal [Recovered/Resolved]

NARRATIVE: CASE EVENT DATE: 20220523
